FAERS Safety Report 5814452-3 (Version None)
Quarter: 2008Q3

REPORT INFORMATION
  Report Type: 
  Country: None (occurrence: None)
  Receive Date: 20080718
  Receipt Date: 20080707
  Transmission Date: 20090109
  Serious: Yes (Other)
  Sender: FDA-Public Use
  Company Number: US-JNJFOC-20080702265

PATIENT
  Age: 12 Year
  Sex: Male

DRUGS (2)
  1. TOPAMAX [Suspect]
     Indication: MIGRAINE
     Route: 065
  2. TOPAMAX [Suspect]
     Indication: CONVULSION
     Route: 065

REACTIONS (1)
  - GROWTH RETARDATION [None]
